FAERS Safety Report 18954522 (Version 13)
Quarter: 2024Q3

REPORT INFORMATION
  Report Type: Spontaneous
  Country: US (occurrence: US)
  Receive Date: 20210301
  Receipt Date: 20240701
  Transmission Date: 20241016
  Serious: Yes (Other)
  Sender: PFIZER
  Company Number: US-PFIZER INC-2021209297

PATIENT
  Age: 77 Year
  Sex: Male

DRUGS (5)
  1. XELJANZ [Suspect]
     Active Substance: TOFACITINIB CITRATE
     Indication: Rheumatoid arthritis
     Dosage: 10 MG, 2X/DAY
     Route: 048
     Dates: start: 202101
  2. XELJANZ [Suspect]
     Active Substance: TOFACITINIB CITRATE
     Indication: Colitis ulcerative
     Dosage: 5 MG, 2X/DAY
  3. XELJANZ [Suspect]
     Active Substance: TOFACITINIB CITRATE
     Indication: Psoriasis
     Dosage: 5 MG, 2X/DAY
  4. XELJANZ [Suspect]
     Active Substance: TOFACITINIB CITRATE
     Dosage: TAKE TWO IN THE MORNING AND TWO IN THE EVENING
  5. XELJANZ [Suspect]
     Active Substance: TOFACITINIB CITRATE
     Dosage: 10 MG, 1X/DAY (10 MG 1 EVERY DAY)

REACTIONS (8)
  - Myocardial infarction [Unknown]
  - Type 2 diabetes mellitus [Unknown]
  - Therapeutic product effect decreased [Unknown]
  - Off label use [Unknown]
  - Constipation [Unknown]
  - Condition aggravated [Unknown]
  - Memory impairment [Unknown]
  - Drug tolerance [Unknown]

NARRATIVE: CASE EVENT DATE: 20210101
